FAERS Safety Report 9220644 (Version 1)
Quarter: 2013Q2

REPORT INFORMATION
  Report Type: Spontaneous
  Country: US (occurrence: US)
  Receive Date: 20130409
  Receipt Date: 20130409
  Transmission Date: 20140414
  Serious: Yes (Other)
  Sender: FDA-Public Use
  Company Number: US-ASTRAZENECA-2013SE21029

PATIENT
  Age: 62 Year
  Sex: Male

DRUGS (4)
  1. BRILINTA [Suspect]
     Route: 048
  2. DES [Concomitant]
  3. LEXAPRO [Concomitant]
  4. KLONOPIN [Concomitant]

REACTIONS (1)
  - Epistaxis [Unknown]
